FAERS Safety Report 15764761 (Version 1)
Quarter: 2018Q4

REPORT INFORMATION
  Report Type: Spontaneous
  Country: DE (occurrence: DE)
  Receive Date: 20181227
  Receipt Date: 20181227
  Transmission Date: 20190205
  Serious: Yes (Other)
  Sender: FDA-Public Use
  Company Number: DE-TEVA-2018-DE-991581

PATIENT
  Sex: Female

DRUGS (1)
  1. VALSARTAN ABZ [Suspect]
     Active Substance: VALSARTAN
     Route: 048

REACTIONS (2)
  - Breast cancer female [Unknown]
  - Product impurity [Unknown]
